FAERS Safety Report 5674256-1 (Version None)
Quarter: 2008Q2

REPORT INFORMATION
  Report Type: 
  Country: None (occurrence: None)
  Receive Date: 20080227
  Receipt Date: 20071116
  Transmission Date: 20081010
  Serious: Yes (Hospitalization)
  Sender: FDA-Public Use
  Company Number: US-WYE-H01340507

PATIENT
  Sex: Female

DRUGS (2)
  1. EFFEXOR [Suspect]
  2. MIRAPEX ^BOEHRINGER INGELHEIM^ (PRAMPEXOLE DIHYDROCHLORIDE, GEL) [Suspect]
     Indication: RESTLESS LEGS SYNDROME
     Dosage: 0.25 MG 1X PER 1 DAY

REACTIONS (1)
  - CEREBROVASCULAR ACCIDENT [None]
